FAERS Safety Report 11723910 (Version 1)
Quarter: 2015Q4

REPORT INFORMATION
  Report Type: Spontaneous
  Country: FR (occurrence: FR)
  Receive Date: 20151111
  Receipt Date: 20151111
  Transmission Date: 20160304
  Serious: Yes (Hospitalization, Other)
  Sender: FDA-Public Use
  Company Number: FR-DEP_13005_2015

PATIENT
  Age: 95 Year
  Sex: Male

DRUGS (9)
  1. DUROGESIC [Suspect]
     Active Substance: FENTANYL
     Indication: PAIN
     Dosage: 25 MCG/HR
     Route: 062
     Dates: start: 20150702, end: 20150711
  2. LEVOTHYROXINE. [Concomitant]
     Active Substance: LEVOTHYROXINE
     Dosage: DF
  3. CEFEPIME [Suspect]
     Active Substance: CEFEPIME HYDROCHLORIDE
     Indication: INTERVERTEBRAL DISCITIS
     Dosage: [DAILY]
     Route: 042
     Dates: start: 20150707, end: 20150711
  4. TAMSULOSINE [Concomitant]
     Active Substance: TAMSULOSIN HYDROCHLORIDE
     Dosage: DF
  5. PREVISCAN [Concomitant]
     Active Substance: FLUINDIONE
     Indication: ARTHRALGIA
     Dosage: DF
  6. APROVEL [Concomitant]
     Active Substance: IRBESARTAN
     Dosage: DF
  7. PARACETAMOL [Concomitant]
     Active Substance: ACETAMINOPHEN
     Indication: ARTHRALGIA
     Dosage: DF
  8. COAPROVEL [Concomitant]
     Active Substance: HYDROCHLOROTHIAZIDE\IRBESARTAN
     Dosage: DF
  9. PECFENT [Suspect]
     Active Substance: FENTANYL CITRATE
     Indication: PAIN
     Dosage: DF
     Route: 045
     Dates: start: 20150630, end: 20150711

REACTIONS (1)
  - Encephalopathy [Recovering/Resolving]

NARRATIVE: CASE EVENT DATE: 20150711
